FAERS Safety Report 11371655 (Version 1)
Quarter: 2015Q3

REPORT INFORMATION
  Report Type: Spontaneous
  Country: US (occurrence: US)
  Receive Date: 20150812
  Receipt Date: 20150812
  Transmission Date: 20151125
  Serious: No
  Sender: FDA-Public Use
  Company Number: GXBR2015US001235

PATIENT
  Age: 52 Year
  Sex: Female
  Weight: 56.69 kg

DRUGS (1)
  1. CLONAZEPAM TABLETS, USP [Suspect]
     Active Substance: CLONAZEPAM
     Indication: ANXIETY
     Dosage: 1 MG, BID2SDO
     Route: 048
     Dates: start: 20150323

REACTIONS (1)
  - Drug ineffective [Not Recovered/Not Resolved]
